FAERS Safety Report 5681356-9 (Version None)
Quarter: 2008Q1

REPORT INFORMATION
  Report Type: 
  Country: None (occurrence: None)
  Receive Date: 20080326
  Receipt Date: 20070130
  Transmission Date: 20080703
  Serious: Yes (Other)
  Sender: FDA-Public Use
  Company Number: US-BAYER-US-2007-002342

PATIENT
  Age: 25 Year
  Sex: Female
  Weight: 72 kg

DRUGS (1)
  1. MIRENA [Suspect]
     Route: 015
     Dates: start: 20051110, end: 20061024

REACTIONS (3)
  - ABORTION THREATENED [None]
  - HYPOMENORRHOEA [None]
  - PREGNANCY WITH CONTRACEPTIVE DEVICE [None]
